FAERS Safety Report 4577054-5 (Version None)
Quarter: 2005Q1

REPORT INFORMATION
  Report Type: 
  Country: None (occurrence: None)
  Receive Date: 20050208
  Receipt Date: 20050128
  Transmission Date: 20050727
  Serious: Yes (Hospitalization, Other)
  Sender: FDA-Public Use
  Company Number: HQWYE990231JAN05

PATIENT
  Age: 52 Year
  Sex: Female
  Weight: 51.3 kg

DRUGS (3)
  1. PREMPRO [Suspect]
     Dosage: SEE IMAGE
     Route: 048
     Dates: start: 19950101, end: 20050107
  2. PREMPRO [Suspect]
     Dosage: SEE IMAGE
     Route: 048
     Dates: start: 20050112, end: 20050114
  3. ALTACE [Concomitant]

REACTIONS (4)
  - CARDIAC FLUTTER [None]
  - CHEST PAIN [None]
  - DYSPNOEA [None]
  - HOT FLUSH [None]
